FAERS Safety Report 5118031-5 (Version None)
Quarter: 2006Q3

REPORT INFORMATION
  Report Type: 
  Country: None (occurrence: None)
  Receive Date: 20060929
  Receipt Date: 20021217
  Transmission Date: 20061208
  Serious: Yes (Death, Life-Threatening, Hospitalization)
  Sender: FDA-Public Use
  Company Number: US-BOEHRINGER INGELHEIM PHARMACEUTICALS, INC.-2002-BP-06174BP

PATIENT
  Sex: Male
  Weight: 73.9 kg

DRUGS (22)
  1. TIPRANAVIR / RITONAVIR CAPSULES [Suspect]
     Indication: HIV INFECTION
     Dosage: TIPRANAVIR 1000MG/RITONAVIR 400MG
     Route: 048
     Dates: start: 20020701, end: 20021224
  2. TIPRANAVIR / RITONAVIR CAPSULES [Suspect]
     Dosage: TIPRANAVIR 1000MG/RITONAVIR (NORVIR) 400MG
     Route: 048
     Dates: start: 20021216, end: 20021224
  3. ENFUVIRTIDE (T-20) [Suspect]
     Indication: HIV INFECTION
     Route: 058
     Dates: start: 20021107, end: 20021213
  4. CIPROFLOXACIN [Suspect]
     Indication: STAPHYLOCOCCAL INFECTION
     Route: 048
     Dates: start: 20021120, end: 20021129
  5. CIPROFLOXACIN [Suspect]
     Indication: CELLULITIS
  6. CIPROFLOXACIN [Suspect]
     Indication: INFECTION
  7. ALLOPURINOL [Suspect]
     Indication: GOUT
     Route: 048
     Dates: start: 20020605, end: 20021213
  8. LOTENSIN [Concomitant]
     Dates: start: 19960101
  9. ATENOLOL [Concomitant]
     Dates: start: 19990210
  10. EPOGEN [Concomitant]
     Dates: start: 20000821
  11. VITAMIN B-12 [Concomitant]
     Dates: start: 19960101
  12. NORVASC [Concomitant]
     Dates: start: 19980101
  13. SPORANOX [Concomitant]
     Dates: start: 20021014
  14. ANADROL [Concomitant]
     Dates: start: 20001106
  15. NEURONTIN [Concomitant]
     Dates: start: 20021014
  16. ASACOL [Concomitant]
     Dates: start: 20010621
  17. INSULIN [Concomitant]
     Dosage: VARIABLE
     Dates: start: 20020408
  18. DEXFERRUM [Concomitant]
     Dates: start: 20010223
  19. LOMOTIL [Concomitant]
     Dosage: 1 TAB
     Dates: start: 20020903
  20. ACTONEL [Concomitant]
     Dates: start: 20020926
  21. NEUPOGEN [Concomitant]
     Dates: start: 19990101
  22. NIFEREX [Concomitant]
     Dates: start: 20000907

REACTIONS (20)
  - AIDS RELATED COMPLICATION [None]
  - ASPIRATION [None]
  - CARDIOMEGALY [None]
  - CHEYNE-STOKES RESPIRATION [None]
  - CONVULSION [None]
  - DEPRESSED LEVEL OF CONSCIOUSNESS [None]
  - DIALYSIS [None]
  - GENERAL PHYSICAL HEALTH DETERIORATION [None]
  - HYPERKALAEMIA [None]
  - KIDNEY ENLARGEMENT [None]
  - NEPHROLITHIASIS [None]
  - NEPHROPATHY [None]
  - PANCYTOPENIA [None]
  - PULMONARY OEDEMA [None]
  - PYREXIA [None]
  - RENAL FAILURE [None]
  - RESPIRATORY DISORDER [None]
  - SHIFT TO THE LEFT [None]
  - STUPOR [None]
  - VOMITING [None]
